FAERS Safety Report 5125967-8 (Version None)
Quarter: 2006Q4

REPORT INFORMATION
  Report Type: 
  Country: None (occurrence: None)
  Receive Date: 20061010
  Receipt Date: 20061010
  Transmission Date: 20070319
  Serious: No
  Sender: FDA-Public Use
  Company Number: None

PATIENT
  Age: 73 Year
  Sex: Female

DRUGS (1)
  1. POLYETHYLENE GLYCOL 3350 POWDER FOR SOLUTION [Suspect]
     Indication: CONSTIPATION
     Dosage: MIX  1 CAPFUL (17 GRAMS) IN WATER AND DRINK TWICE A DAY CAPFUL (
     Dates: start: 20060725

REACTIONS (1)
  - PHARMACEUTICAL PRODUCT COMPLAINT [None]
